FAERS Safety Report 25271965 (Version 3)
Quarter: 2025Q3

REPORT INFORMATION
  Report Type: Spontaneous
  Country: EU (occurrence: EU)
  Receive Date: 20250506
  Receipt Date: 20250810
  Transmission Date: 20251021
  Serious: Yes (Other)
  Sender: ALEXION PHARMACEUTICALS
  Company Number: EU-AstraZeneca-CH-00858888A

PATIENT
  Age: 53 Year
  Sex: Female

DRUGS (2)
  1. TEZSPIRE [Suspect]
     Active Substance: TEZEPELUMAB-EKKO
     Indication: Asthma
     Route: 065
  2. TEZSPIRE [Suspect]
     Active Substance: TEZEPELUMAB-EKKO
     Indication: NSAID exacerbated respiratory disease

REACTIONS (3)
  - Herpes zoster [Unknown]
  - Lymphocytosis [Unknown]
  - Asthma [Unknown]

NARRATIVE: CASE EVENT DATE: 20250410
